FAERS Safety Report 9934265 (Version 1)
Quarter: 2014Q1

REPORT INFORMATION
  Report Type: Spontaneous
  Country: US (occurrence: US)
  Receive Date: 20140228
  Receipt Date: 20140228
  Transmission Date: 20141002
  Serious: No
  Sender: FDA-Public Use
  Company Number: US-ABBVIE-13P-163-1182921-00

PATIENT
  Sex: Male

DRUGS (1)
  1. ANDROGEL STICK PACK 2.5G [Suspect]
     Indication: PRODUCT USED FOR UNKNOWN INDICATION
     Dosage: PACKET
     Route: 061
     Dates: start: 201311

REACTIONS (1)
  - Application site pruritus [Not Recovered/Not Resolved]
